FAERS Safety Report 7353319-9 (Version None)
Quarter: 2011Q1

REPORT INFORMATION
  Report Type: 
  Country: None (occurrence: None)
  Receive Date: 20110315
  Receipt Date: 20110302
  Transmission Date: 20110831
  Serious: Yes (Death, Hospitalization)
  Sender: FDA-Public Use
  Company Number: US-ACTELION-A-US2011-44652

PATIENT

DRUGS (2)
  1. TRACLEER [Suspect]
     Dosage: 125 MG, BID
     Route: 048
     Dates: start: 20110201, end: 20110209
  2. TRACLEER [Suspect]
     Indication: PULMONARY ARTERIAL HYPERTENSION
     Dosage: 62.5 MG, UNK
     Route: 048
     Dates: start: 20110103

REACTIONS (4)
  - HYPONATRAEMIA [None]
  - DYSPNOEA [None]
  - PNEUMONIA [None]
  - CARDIAC FAILURE CONGESTIVE [None]
